FAERS Safety Report 9910763 (Version 2)
Quarter: 2014Q1

REPORT INFORMATION
  Report Type: Spontaneous
  Country: US (occurrence: US)
  Receive Date: 20140219
  Receipt Date: 20140219
  Transmission Date: 20141002
  Serious: No
  Sender: FDA-Public Use
  Company Number: US-GILEAD-2012-0053557

PATIENT
  Sex: Female

DRUGS (19)
  1. LETAIRIS [Suspect]
     Indication: PULMONARY ARTERIAL HYPERTENSION
     Dosage: 5 MG, UNK
     Route: 048
     Dates: start: 20111001
  2. DUONEB [Concomitant]
  3. ATIVAN [Concomitant]
  4. ZOLOFT [Concomitant]
  5. NAPROXEN [Concomitant]
  6. OMEPRAZOLE [Concomitant]
  7. METHYLDOPA [Concomitant]
  8. HYDROCODONE/ACETAMINOPHEN          /00607101/ [Concomitant]
  9. METHOCARBAMOL [Concomitant]
  10. JANUVIA [Concomitant]
  11. REVATIO [Concomitant]
  12. SINGULAIR [Concomitant]
  13. METOPROLOL TARTRATE [Concomitant]
  14. GLIMEPIRIDE [Concomitant]
  15. LISINOPRIL [Concomitant]
  16. FUROSEMIDE [Concomitant]
  17. AMLODIPINE [Concomitant]
  18. SPIRONOLACTONE [Concomitant]
  19. ALAVERT [Concomitant]

REACTIONS (2)
  - Blood potassium increased [Unknown]
  - Gait disturbance [Unknown]
